FAERS Safety Report 19889249 (Version 3)
Quarter: 2021Q4

REPORT INFORMATION
  Report Type: Spontaneous
  Country: GB (occurrence: GB)
  Receive Date: 20210927
  Receipt Date: 20211229
  Transmission Date: 20220303
  Serious: No
  Sender: FDA-Public Use
  Company Number: GB-ETON PHARMACEUTICALS, INC-2021ETO000139

PATIENT

DRUGS (1)
  1. ALKINDI SPRINKLE [Suspect]
     Active Substance: HYDROCORTISONE
     Indication: Adrenal insufficiency
     Dosage: 3 MG, UNK
     Dates: start: 201812, end: 201812

REACTIONS (1)
  - Retching [Recovered/Resolved]
